FAERS Safety Report 8576603-X (Version None)
Quarter: 2012Q3

REPORT INFORMATION
  Report Type: 
  Country: None (occurrence: None)
  Receive Date: 20120807
  Receipt Date: 20120801
  Transmission Date: 20120928
  Serious: Yes (Hospitalization)
  Sender: FDA-Public Use
  Company Number: BE-BAYER-2012-051384

PATIENT
  Age: 69 Year
  Sex: Male
  Weight: 100 kg

DRUGS (11)
  1. MOLSIDOMINE [Concomitant]
     Indication: MYOCARDIAL ISCHAEMIA
     Dosage: 16 MG
     Route: 048
     Dates: start: 20120421
  2. BISOPROLOL FUMARATE [Concomitant]
     Dosage: 10 MG, QD
  3. ASPIRIN [Interacting]
     Indication: CORONARY ARTERY DISEASE
     Dosage: 80 MG, QD
     Route: 048
     Dates: start: 20120420
  4. SIMVASTATIN [Concomitant]
     Dosage: 40 MG, QD
  5. FLUTICASONE PROPIONATE/SALMETEROL [Concomitant]
     Dosage: UNK
  6. HYDROCHLOROTHIAZDE TAB [Concomitant]
     Dosage: 12.5 MG
     Route: 048
  7. CLOPIDOGREL [Interacting]
     Dosage: 75 MG, QD
     Route: 048
     Dates: start: 20120421
  8. SALMETEROL [Concomitant]
     Dosage: 100 ?G
     Route: 055
  9. LORETAM [Concomitant]
  10. RIVAROXABAN [Suspect]
     Indication: PERCUTANEOUS CORONARY INTERVENTION
     Dosage: UNK
     Route: 048
     Dates: start: 20120507, end: 20120507
  11. FLUTICASONE PROPIONATE [Concomitant]
     Dosage: 1000 ?G
     Route: 055

REACTIONS (1)
  - LOWER GASTROINTESTINAL HAEMORRHAGE [None]
